FAERS Safety Report 8435213-5 (Version None)
Quarter: 2012Q2

REPORT INFORMATION
  Report Type: 
  Country: None (occurrence: None)
  Receive Date: 20120614
  Receipt Date: 20120606
  Transmission Date: 20120825
  Serious: Yes (Other)
  Sender: FDA-Public Use
  Company Number: DE-ASTELLAS-2012US005365

PATIENT

DRUGS (1)
  1. TARCEVA [Suspect]
     Indication: PANCREATIC CARCINOMA
     Dosage: UNK
     Route: 048
     Dates: start: 20120501, end: 20120530

REACTIONS (2)
  - NEOPLASM MALIGNANT [None]
  - OBSTRUCTION GASTRIC [None]
